FAERS Safety Report 13363550 (Version 1)
Quarter: 2017Q1

REPORT INFORMATION
  Report Type: Spontaneous
  Country: GB (occurrence: GB)
  Receive Date: 20170323
  Receipt Date: 20170323
  Transmission Date: 20170429
  Serious: Yes (Hospitalization, Other)
  Sender: FDA-Public Use
  Company Number: GB-PFIZER INC-2017121847

PATIENT
  Age: 51 Year
  Sex: Male

DRUGS (7)
  1. DOXORUBICIN HCL [Suspect]
     Active Substance: DOXORUBICIN HYDROCHLORIDE
     Indication: DIFFUSE LARGE B-CELL LYMPHOMA
     Dosage: UNK
     Dates: start: 20161027, end: 20170126
  2. VINCRISTINE SULFATE. [Suspect]
     Active Substance: VINCRISTINE SULFATE
     Indication: DIFFUSE LARGE B-CELL LYMPHOMA
     Dosage: UNK
     Dates: start: 20161027, end: 20170126
  3. PREDNISOLONE. [Suspect]
     Active Substance: PREDNISOLONE
     Indication: DIFFUSE LARGE B-CELL LYMPHOMA
     Dosage: UNK
     Dates: start: 20161027, end: 20170126
  4. RITUXIMAB [Suspect]
     Active Substance: RITUXIMAB
     Indication: DIFFUSE LARGE B-CELL LYMPHOMA
     Dosage: UNK
     Dates: start: 20161027, end: 20170126
  5. ZAPONEX [Suspect]
     Active Substance: CLOZAPINE
     Indication: SCHIZOPHRENIA
     Dosage: 650 MG, UNK
     Route: 048
     Dates: start: 20100916, end: 20170301
  6. ZAPONEX [Suspect]
     Active Substance: CLOZAPINE
     Dosage: 650 MG, 3X/DAY
     Route: 048
     Dates: start: 20170308
  7. CYCLOPHOSPHAMIDE. [Suspect]
     Active Substance: CYCLOPHOSPHAMIDE
     Indication: DIFFUSE LARGE B-CELL LYMPHOMA
     Dosage: UNK
     Dates: start: 20161027, end: 20170126

REACTIONS (10)
  - Neutrophil count increased [Recovered/Resolved]
  - Neoplasm progression [Not Recovered/Not Resolved]
  - Nerve compression [Recovering/Resolving]
  - Neutropenia [Recovered/Resolved]
  - Disease recurrence [Recovered/Resolved]
  - Leukopenia [Recovered/Resolved]
  - Dysphagia [Not Recovered/Not Resolved]
  - Contraindicated product administered [Recovered/Resolved]
  - Lower respiratory tract infection [Not Recovered/Not Resolved]
  - Platelet count decreased [Recovered/Resolved]

NARRATIVE: CASE EVENT DATE: 201610
